FAERS Safety Report 18245296 (Version 2)
Quarter: 2020Q4

REPORT INFORMATION
  Report Type: Report from Study
  Country: US (occurrence: US)
  Receive Date: 20200909
  Receipt Date: 20201013
  Transmission Date: 20210113
  Serious: Yes (Other)
  Sender: FDA-Public Use
  Company Number: US-BIOVITRUM-2020US4751

PATIENT
  Age: 33 Year
  Sex: Female

DRUGS (1)
  1. KINERET [Suspect]
     Active Substance: ANAKINRA
     Indication: CRYOPYRIN ASSOCIATED PERIODIC SYNDROME
     Route: 058
     Dates: start: 20200707

REACTIONS (10)
  - Brucellosis [Unknown]
  - Bruxism [Unknown]
  - Ear pain [Unknown]
  - Pain in jaw [Unknown]
  - Autoinflammatory disease [Unknown]
  - Headache [Unknown]
  - Labyrinthitis [Unknown]
  - Off label use [Unknown]
  - Autoimmune disorder [Unknown]
  - Temporomandibular joint syndrome [Unknown]

NARRATIVE: CASE EVENT DATE: 20200707
